FAERS Safety Report 25421661 (Version 1)
Quarter: 2025Q2

REPORT INFORMATION
  Report Type: Spontaneous
  Country: DE (occurrence: DE)
  Receive Date: 20250611
  Receipt Date: 20250611
  Transmission Date: 20250717
  Serious: Yes (Other)
  Sender: AUROBINDO
  Company Number: DE-002147023-NVSC2022DE138693

PATIENT
  Age: 21 Year
  Sex: Female

DRUGS (4)
  1. BORTEZOMIB [Suspect]
     Active Substance: BORTEZOMIB
     Indication: Ovarian germ cell teratoma
     Route: 065
  2. METHYLPREDNISOLONE [Suspect]
     Active Substance: METHYLPREDNISOLONE
     Indication: Ovarian germ cell teratoma
     Dosage: 500 MILLIGRAM, ONCE A DAY(500 MG, QD, OVER THE FIRST 5 DAYS)
     Route: 042
  3. PREDNISOLONE [Suspect]
     Active Substance: PREDNISOLONE
     Indication: Ovarian germ cell teratoma
     Dosage: 1 MILLIGRAM/KILOGRAM, ONCE A DAY(1 MG/KG, QD, SLOWLY TAPERED TO 7.5 MG/DAYS MAINTENANCE DOSE)
     Route: 048
  4. RITUXIMAB [Suspect]
     Active Substance: RITUXIMAB
     Indication: Ovarian germ cell teratoma
     Route: 065

REACTIONS (3)
  - Drug ineffective for unapproved indication [Unknown]
  - Product use in unapproved indication [Unknown]
  - Drug ineffective [Unknown]
